FAERS Safety Report 9970060 (Version 1)
Quarter: 2014Q1

REPORT INFORMATION
  Report Type: Spontaneous
  Country: US (occurrence: US)
  Receive Date: 20140306
  Receipt Date: 20140306
  Transmission Date: 20141002
  Serious: Yes (Hospitalization)
  Sender: FDA-Public Use
  Company Number: US-TEVA-465182USA

PATIENT
  Sex: 0

DRUGS (1)
  1. ACICLOVIR [Suspect]

REACTIONS (4)
  - Neurological symptom [Unknown]
  - Headache [Unknown]
  - Tremor [Unknown]
  - Confusional state [Unknown]
